FAERS Safety Report 7691586-2 (Version None)
Quarter: 2011Q3

REPORT INFORMATION
  Report Type: 
  Country: None (occurrence: None)
  Receive Date: 20110818
  Receipt Date: 20110809
  Transmission Date: 20111222
  Serious: Yes (Hospitalization)
  Sender: FDA-Public Use
  Company Number: BR-ASTRAZENECA-2011SE48675

PATIENT
  Age: 67 Year
  Sex: Female
  Weight: 65 kg

DRUGS (3)
  1. ATACAND [Suspect]
     Route: 048
     Dates: start: 20110401, end: 20110712
  2. ATACAND [Suspect]
     Dosage: TWO TABLETS BY MORNING AND ONE TABLET AT NIGHT
     Route: 048
     Dates: start: 20110712
  3. ATACAND [Suspect]
     Indication: HYPERTENSION
     Route: 048
     Dates: start: 20080101, end: 20110401

REACTIONS (5)
  - DRUG INEFFECTIVE [None]
  - BONE DENSITY DECREASED [None]
  - BLOOD PRESSURE INADEQUATELY CONTROLLED [None]
  - BLOOD PRESSURE INCREASED [None]
  - OFF LABEL USE [None]
